FAERS Safety Report 13050709 (Version 2)
Quarter: 2017Q2

REPORT INFORMATION
  Report Type: Spontaneous
  Country: US (occurrence: US)
  Receive Date: 20161221
  Receipt Date: 20170508
  Transmission Date: 20170830
  Serious: Yes (Hospitalization, Other)
  Sender: FDA-Public Use
  Company Number: US-PFIZER INC-2016584030

PATIENT
  Age: 29 Year
  Sex: Female

DRUGS (1)
  1. METHOTREXATE SODIUM. [Suspect]
     Active Substance: METHOTREXATE SODIUM
     Indication: PLACENTA ACCRETA
     Dosage: 50 MG, EVERY OTHER DAY (THREE DOSES WAS DECIDED)
     Route: 030

REACTIONS (3)
  - Vaginal haemorrhage [Recovering/Resolving]
  - Endometritis [Recovering/Resolving]
  - Pyrexia [Recovering/Resolving]
